FAERS Safety Report 9856833 (Version 1)
Quarter: 2014Q1

REPORT INFORMATION
  Report Type: Spontaneous
  Country: DE (occurrence: DE)
  Receive Date: 20140130
  Receipt Date: 20140130
  Transmission Date: 20141002
  Serious: Yes (Other)
  Sender: FDA-Public Use
  Company Number: DE-TEVA-457804GER

PATIENT
  Sex: Male

DRUGS (1)
  1. SILDENAFIL RATIOPHARM [Suspect]
     Route: 048

REACTIONS (1)
  - Prostatic specific antigen increased [Unknown]
